FAERS Safety Report 5720223-9 (Version None)
Quarter: 2008Q2

REPORT INFORMATION
  Report Type: 
  Country: None (occurrence: None)
  Receive Date: 20080428
  Receipt Date: 20070816
  Transmission Date: 20081010
  Serious: No
  Sender: FDA-Public Use
  Company Number: US-AMGEN-US234323

PATIENT
  Sex: Female
  Weight: 60 kg

DRUGS (1)
  1. SENSIPAR [Suspect]
     Indication: HYPERPARATHYROIDISM SECONDARY
     Route: 048
     Dates: start: 20070614, end: 20070712

REACTIONS (2)
  - HYPOAESTHESIA ORAL [None]
  - TONGUE ERUPTION [None]
